FAERS Safety Report 23544360 (Version 1)
Quarter: 2024Q1

REPORT INFORMATION
  Report Type: Spontaneous
  Country: ES (occurrence: ES)
  Receive Date: 20240220
  Receipt Date: 20240220
  Transmission Date: 20240410
  Serious: Yes (Hospitalization, Other)
  Sender: FDA-Public Use
  Company Number: ES-CLINIGEN-ES-CLI-2024-009482

PATIENT
  Age: 59 Year
  Sex: Male

DRUGS (8)
  1. FOSCARNET SODIUM [Suspect]
     Active Substance: FOSCARNET SODIUM
     Indication: Cytomegalovirus gastrointestinal infection
     Dosage: 3000 MILLIGRAM, Q12H
  2. FOSCARNET SODIUM [Suspect]
     Active Substance: FOSCARNET SODIUM
     Indication: Cytomegalovirus infection reactivation
     Dosage: UNK
  3. FOSCARNET SODIUM [Suspect]
     Active Substance: FOSCARNET SODIUM
     Indication: Parvovirus infection
  4. CYTOTEC [Suspect]
     Active Substance: MISOPROSTOL
     Indication: Cytomegalovirus gastrointestinal infection
     Dosage: 70 MILLILITER, QOD
  5. EVEROLIMUS [Concomitant]
     Active Substance: EVEROLIMUS
     Indication: Immunosuppressant drug therapy
  6. LETERMOVIR [Concomitant]
     Active Substance: LETERMOVIR
     Indication: Cytomegalovirus infection reactivation
     Dosage: 800 MILLIGRAM, QD
  7. LETERMOVIR [Concomitant]
     Active Substance: LETERMOVIR
     Dosage: 400 MILLIGRAM, QD
  8. VALGANCICLOVIR [Concomitant]
     Active Substance: VALGANCICLOVIR
     Indication: Cytomegalovirus infection reactivation
     Dosage: 450 MILLIGRAM, QD

REACTIONS (6)
  - Septic shock [Unknown]
  - Device related sepsis [Unknown]
  - Hypocalcaemia [Recovering/Resolving]
  - Hypomagnesaemia [Recovering/Resolving]
  - Polyuria [Recovering/Resolving]
  - Off label use [Unknown]
